FAERS Safety Report 6875597-2 (Version None)
Quarter: 2010Q3

REPORT INFORMATION
  Report Type: 
  Country: None (occurrence: None)
  Receive Date: 20100727
  Receipt Date: 20100715
  Transmission Date: 20110219
  Serious: No
  Sender: FDA-Public Use
  Company Number: US-JNJFOC-20100705633

PATIENT
  Sex: Male
  Weight: 86.18 kg

DRUGS (3)
  1. SANDOZ FENTANYL TRANSDERMAL SYSTEM [Suspect]
     Indication: ARTHRITIS
     Route: 062
  2. OXYCODONE [Concomitant]
     Indication: PAIN
     Route: 065
  3. OXYCONTIN [Concomitant]
     Indication: PAIN
     Route: 065

REACTIONS (3)
  - DRUG DOSE OMISSION [None]
  - PAIN [None]
  - WRONG TECHNIQUE IN DRUG USAGE PROCESS [None]
